FAERS Safety Report 22198967 (Version 1)
Quarter: 2023Q2

REPORT INFORMATION
  Report Type: Spontaneous
  Country: US (occurrence: US)
  Receive Date: 20230411
  Receipt Date: 20230411
  Transmission Date: 20230721
  Serious: No
  Sender: FDA-Public Use
  Company Number: US-BRISTOL-MYERS SQUIBB COMPANY-2023-051532

PATIENT
  Age: 60 Year
  Sex: Female

DRUGS (1)
  1. LENALIDOMIDE [Suspect]
     Active Substance: LENALIDOMIDE
     Indication: Plasma cell myeloma in remission
     Dosage: FREQUENCY: TAKE 1 CAPSULE BY MOUTH DAILY FOR 7 DAYS ON, THEN 7 DAYS OFF, REPEAT
     Route: 048

REACTIONS (2)
  - Tooth disorder [Recovering/Resolving]
  - Off label use [Unknown]
